FAERS Safety Report 5208761-9 (Version None)
Quarter: 2007Q1

REPORT INFORMATION
  Report Type: 
  Country: None (occurrence: None)
  Receive Date: 20070116
  Receipt Date: 20070105
  Transmission Date: 20070707
  Serious: Yes (Life-Threatening)
  Sender: FDA-Public Use
  Company Number: PHFR2007GB00470

PATIENT
  Age: 11 Year
  Weight: 35.6 kg

DRUGS (5)
  1. CYCLOSPORINE [Suspect]
     Dosage: 90MG / DAY
     Route: 042
     Dates: start: 20061212, end: 20061212
  2. ORTHOCLONE OKT3 [Concomitant]
     Dosage: 5MG / DAY
     Route: 042
     Dates: start: 20061208
  3. ACYCLOVIR [Concomitant]
     Dosage: 360MG / DAY
     Route: 042
     Dates: start: 20061213
  4. METRONIDAZOLE [Concomitant]
     Route: 065
  5. SEPTRIN [Concomitant]
     Route: 065

REACTIONS (4)
  - FACE OEDEMA [None]
  - FLUSHING [None]
  - TACHYCARDIA [None]
  - VOMITING [None]
